FAERS Safety Report 12105091 (Version 1)
Quarter: 2016Q1

REPORT INFORMATION
  Report Type: Spontaneous
  Country: FR (occurrence: FR)
  Receive Date: 20160223
  Receipt Date: 20160223
  Transmission Date: 20160526
  Serious: Yes (Other)
  Sender: FDA-Public Use
  Company Number: FR-JNJFOC-20160215328

PATIENT
  Sex: Female

DRUGS (5)
  1. RISPERDAL [Suspect]
     Active Substance: RISPERIDONE
     Indication: DEPRESSION
     Dosage: ONE TABLET PER DAY
     Route: 048
     Dates: start: 20140101, end: 20160112
  2. DEPAKOTE [Suspect]
     Active Substance: DIVALPROEX SODIUM
     Indication: DEPRESSION
     Route: 048
     Dates: start: 20140101, end: 20160112
  3. SERESTA [Suspect]
     Active Substance: OXAZEPAM
     Indication: DEPRESSION
     Dosage: ONE TABLET PER DAY
     Route: 048
     Dates: start: 20150101, end: 20160112
  4. SEROPAM [Suspect]
     Active Substance: ESCITALOPRAM OXALATE
     Indication: DEPRESSION
     Route: 048
     Dates: start: 20150101
  5. TERCIAN [Suspect]
     Active Substance: CYAMEMAZINE
     Indication: DEPRESSION
     Dosage: DOSE STRENGTH 25 MG FREQUENCY HALF A TABLET PER DAY IF NEEDED
     Route: 048
     Dates: start: 20140101, end: 20160112

REACTIONS (3)
  - Exposure during pregnancy [Unknown]
  - Product use issue [Unknown]
  - Off label use [Unknown]
